FAERS Safety Report 12782133 (Version 1)
Quarter: 2016Q3

REPORT INFORMATION
  Report Type: Spontaneous
  Country: US (occurrence: US)
  Receive Date: 20160923
  Receipt Date: 20160923
  Transmission Date: 20161109
  Serious: Yes (Death)
  Sender: FDA-Public Use
  Company Number: None

PATIENT
  Age: 73 Year
  Sex: Male

DRUGS (10)
  1. ASA [Concomitant]
     Active Substance: ASPIRIN
  2. GLIMEPERIDE [Concomitant]
     Active Substance: GLIMEPIRIDE
  3. COREG [Concomitant]
     Active Substance: CARVEDILOL
  4. ZOCOR [Concomitant]
     Active Substance: SIMVASTATIN
  5. PREDNISONE. [Suspect]
     Active Substance: PREDNISONE
     Indication: IMMUNOSUPPRESSION
     Dates: start: 20160729, end: 201609
  6. ZYTIGA [Suspect]
     Active Substance: ABIRATERONE ACETATE
     Indication: PROSTATE CANCER
     Route: 048
     Dates: start: 20160729, end: 201609
  7. PRILOSEC [Concomitant]
     Active Substance: OMEPRAZOLE MAGNESIUM
  8. PROCARDIA [Concomitant]
     Active Substance: NIFEDIPINE
  9. FENTANYL. [Concomitant]
     Active Substance: FENTANYL
  10. COUMADIN [Concomitant]
     Active Substance: WARFARIN SODIUM

REACTIONS (1)
  - Death [None]

NARRATIVE: CASE EVENT DATE: 201609
